FAERS Safety Report 13215932 (Version 2)
Quarter: 2017Q1

REPORT INFORMATION
  Report Type: Spontaneous
  Country: DZ (occurrence: DZ)
  Receive Date: 20170209
  Receipt Date: 20170303
  Transmission Date: 20170428
  Serious: Yes (Life-Threatening, Hospitalization)
  Sender: FDA-Public Use
  Company Number: DZ-ROCHE-1889528

PATIENT
  Age: 67 Year
  Sex: Female

DRUGS (2)
  1. METALYSE [Suspect]
     Active Substance: TENECTEPLASE
     Indication: ACUTE MYOCARDIAL INFARCTION
     Dosage: 10000 INTERNATIONAL UNITS
     Route: 042
     Dates: start: 20170107
  2. GLUCOPHAGE [Concomitant]
     Active Substance: METFORMIN HYDROCHLORIDE
     Route: 048

REACTIONS (1)
  - Treatment failure [Unknown]
